FAERS Safety Report 20145467 (Version 3)
Quarter: 2022Q1

REPORT INFORMATION
  Report Type: Spontaneous
  Country: JP (occurrence: JP)
  Receive Date: 20211203
  Receipt Date: 20220110
  Transmission Date: 20220423
  Serious: Yes (Death, Other)
  Sender: FDA-Public Use
  Company Number: JP-PFIZER INC-202101630554

PATIENT
  Age: 69 Year
  Sex: Female
  Weight: 53.8 kg

DRUGS (3)
  1. AXITINIB [Suspect]
     Active Substance: AXITINIB
     Indication: Metastatic renal cell carcinoma
     Dosage: 10 MG, DAILY
     Dates: start: 20201023, end: 20201123
  2. AVELUMAB [Suspect]
     Active Substance: AVELUMAB
     Indication: Metastatic renal cell carcinoma
     Dosage: 10 MG/KG
     Dates: start: 20201023, end: 20201123
  3. CABOMETYX [Suspect]
     Active Substance: CABOZANTINIB S-MALATE
     Indication: Metastatic renal cell carcinoma
     Dosage: UNK
     Dates: start: 20201204, end: 20201209

REACTIONS (1)
  - Neoplasm progression [Fatal]

NARRATIVE: CASE EVENT DATE: 20201123
